FAERS Safety Report 4313147-5 (Version None)
Quarter: 2004Q1

REPORT INFORMATION
  Report Type: 
  Country: None (occurrence: None)
  Receive Date: 20040308
  Receipt Date: 20040116
  Transmission Date: 20041129
  Serious: Yes (Life-Threatening, Hospitalization, Other)
  Sender: FDA-Public Use
  Company Number: 200410189FR

PATIENT
  Age: 67 Year
  Sex: Female

DRUGS (2)
  1. ARAVA [Suspect]
     Indication: RHEUMATOID ARTHRITIS
     Route: 048
     Dates: start: 20011215, end: 20031212
  2. CORTANCYL [Concomitant]
     Indication: RHEUMATOID ARTHRITIS
     Route: 048

REACTIONS (9)
  - DISORIENTATION [None]
  - FATIGUE [None]
  - HEART RATE INCREASED [None]
  - HERPES SIMPLEX [None]
  - HYPOXIA [None]
  - LUNG DISORDER [None]
  - ORAL MUCOSAL ERUPTION [None]
  - SEPSIS [None]
  - SEPTIC SHOCK [None]
